FAERS Safety Report 16671564 (Version 1)
Quarter: 2019Q3

REPORT INFORMATION
  Report Type: Spontaneous
  Country: US (occurrence: US)
  Receive Date: 20190806
  Receipt Date: 20190806
  Transmission Date: 20191004
  Serious: No
  Sender: FDA-Public Use
  Company Number: US-BIOGEN-2014BI014787

PATIENT
  Sex: Female

DRUGS (5)
  1. BUPROPION. [Concomitant]
     Active Substance: BUPROPION
     Route: 048
  2. LEVOTHYROXINE. [Concomitant]
     Active Substance: LEVOTHYROXINE
     Route: 048
  3. TECFIDERA [Suspect]
     Active Substance: DIMETHYL FUMARATE
     Route: 048
     Dates: start: 2014
  4. TECFIDERA [Suspect]
     Active Substance: DIMETHYL FUMARATE
     Indication: MULTIPLE SCLEROSIS
     Route: 048
     Dates: start: 2013
  5. HYDROCHLOROTHIAZIDE. [Concomitant]
     Active Substance: HYDROCHLOROTHIAZIDE
     Route: 048

REACTIONS (13)
  - Fatigue [Unknown]
  - Pruritus [Unknown]
  - Hypoaesthesia [Unknown]
  - Female sexual dysfunction [Unknown]
  - Diarrhoea [Not Recovered/Not Resolved]
  - Vulvovaginal hypoaesthesia [Unknown]
  - Musculoskeletal pain [Unknown]
  - Micturition urgency [Unknown]
  - Influenza [Not Recovered/Not Resolved]
  - Balance disorder [Unknown]
  - Flushing [Unknown]
  - Somnolence [Unknown]
  - Temperature intolerance [Unknown]

NARRATIVE: CASE EVENT DATE: 2014
